FAERS Safety Report 10901474 (Version 1)
Quarter: 2015Q1

REPORT INFORMATION
  Report Type: Spontaneous
  Country: GB (occurrence: GB)
  Receive Date: 20150310
  Receipt Date: 20150310
  Transmission Date: 20150721
  Serious: Yes (Life-Threatening, Hospitalization)
  Sender: FDA-Public Use
  Company Number: PHHY2015GB024317

PATIENT
  Age: 74 Year
  Sex: Female

DRUGS (3)
  1. LISINOPRIL. [Suspect]
     Active Substance: LISINOPRIL
     Indication: PRODUCT USED FOR UNKNOWN INDICATION
     Route: 065
  2. VERAPAMIL [Suspect]
     Active Substance: VERAPAMIL HYDROCHLORIDE
     Indication: PRODUCT USED FOR UNKNOWN INDICATION
     Route: 065
  3. NICORANDIL [Suspect]
     Active Substance: NICORANDIL
     Indication: PRODUCT USED FOR UNKNOWN INDICATION
     Route: 065

REACTIONS (21)
  - Contusion [Recovering/Resolving]
  - General physical health deterioration [Recovering/Resolving]
  - Overdose [Recovering/Resolving]
  - Gas gangrene [Unknown]
  - Oliguria [Recovering/Resolving]
  - Hypoxia [Recovering/Resolving]
  - Clostridial infection [Recovering/Resolving]
  - Peripheral swelling [Recovering/Resolving]
  - Hypotension [Recovering/Resolving]
  - Crepitations [Recovering/Resolving]
  - Pyrexia [Recovering/Resolving]
  - Sepsis [Recovering/Resolving]
  - Electrocardiogram ST segment depression [Recovering/Resolving]
  - Aggression [Recovering/Resolving]
  - Respiratory failure [Recovering/Resolving]
  - Metabolic acidosis [Recovering/Resolving]
  - Blister [Recovering/Resolving]
  - Acute kidney injury [Recovering/Resolving]
  - Bradycardia [Recovering/Resolving]
  - ECG signs of myocardial ischaemia [Recovering/Resolving]
  - Wound [Recovering/Resolving]
